FAERS Safety Report 5727423-2 (Version None)
Quarter: 2008Q2

REPORT INFORMATION
  Report Type: 
  Country: None (occurrence: None)
  Receive Date: 20080505
  Receipt Date: 20080429
  Transmission Date: 20081010
  Serious: Yes (Life-Threatening, Hospitalization)
  Sender: FDA-Public Use
  Company Number: DE-AVENTIS-200811192DE

PATIENT
  Age: 47 Year
  Sex: Male
  Weight: 88 kg

DRUGS (4)
  1. ENOXAPARIN SODIUM [Suspect]
     Indication: THROMBOSIS PROPHYLAXIS
     Route: 058
     Dates: start: 20071018, end: 20071023
  2. ENOXAPARIN SODIUM [Suspect]
     Route: 058
     Dates: start: 20071025, end: 20071029
  3. HEPARIN SODIUM [Concomitant]
     Indication: THROMBOSIS PROPHYLAXIS
     Route: 042
     Dates: start: 20071016, end: 20071018
  4. HEPARIN SODIUM [Concomitant]
     Route: 042
     Dates: start: 20071023, end: 20071025

REACTIONS (6)
  - AORTIC THROMBOSIS [None]
  - ATRIAL THROMBOSIS [None]
  - COMPARTMENT SYNDROME [None]
  - HEPARIN-INDUCED THROMBOCYTOPENIA [None]
  - PERONEAL NERVE PALSY [None]
  - PULMONARY EMBOLISM [None]
